FAERS Safety Report 8958626 (Version 1)
Quarter: 2012Q4

REPORT INFORMATION
  Report Type: Spontaneous
  Country: US (occurrence: None)
  Receive Date: 20121206
  Receipt Date: 20121206
  Transmission Date: 20130627
  Serious: No
  Sender: FDA-Public Use
  Company Number: None

PATIENT
  Age: 51 Year
  Sex: Female
  Weight: 57.15 kg

DRUGS (2)
  1. LEVOFLOXACIN [Suspect]
     Indication: RESPIRATORY INFECTION
     Dosage: 500 mg 1x per day po
     Route: 048
     Dates: start: 20120813, end: 20120822
  2. FLOVENT HFA [Concomitant]

REACTIONS (2)
  - Hypoaesthesia [None]
  - Tinnitus [None]
